FAERS Safety Report 9235617 (Version 1)
Quarter: 2013Q1

REPORT INFORMATION
  Report Type: Spontaneous
  Country: US (occurrence: None)
  Receive Date: 20121031
  Receipt Date: 20121031
  Transmission Date: 20140127
  Serious: No
  Sender: FDA-Public Use
  Company Number: PHEH2012US016957

PATIENT
  Sex: Female
  Weight: 68 kg

DRUGS (6)
  1. GILENYA (FTY)CAPSULE, 0.5MG [Suspect]
     Route: 048
  2. NEUROTRONIN (GABAPENTIN) [Concomitant]
  3. TRAMADOL (TRAMADOL) [Concomitant]
  4. BACLOFEN (BACLOFEN) [Concomitant]
  5. VITAMIN D 9ERGOCALCIFEROL) [Concomitant]
  6. VITAMIN B12 (CYANOCOBALMIN) [Concomitant]

REACTIONS (1)
  - Hypoaesthesia [None]
